FAERS Safety Report 5158208-6 (Version None)
Quarter: 2006Q4

REPORT INFORMATION
  Report Type: 
  Country: None (occurrence: None)
  Receive Date: 20061121
  Receipt Date: 20061121
  Transmission Date: 20070319
  Serious: Yes (Other)
  Sender: FDA-Public Use
  Company Number: None

PATIENT
  Sex: Female
  Weight: 49.8957 kg

DRUGS (1)
  1. GEL-KAM (COLGATE PALMOLIVE CO) 0.4% STANNOUS FLORIDE TREATMENT GEL [Suspect]
     Indication: DENTAL CARIES
     Dosage: 1 OR 2 TIMES A DAY
     Dates: start: 19800101

REACTIONS (2)
  - DRUG EFFECT DECREASED [None]
  - PHARMACEUTICAL PRODUCT COMPLAINT [None]
